FAERS Safety Report 10366177 (Version 1)
Quarter: 2014Q3

REPORT INFORMATION
  Report Type: Spontaneous
  Country: US (occurrence: None)
  Receive Date: 20140805
  Receipt Date: 20140805
  Transmission Date: 20150326
  Serious: Yes (Disabling, Other)
  Sender: FDA-Public Use
  Company Number: None

PATIENT
  Age: 63 Year
  Sex: Female
  Weight: 72.58 kg

DRUGS (7)
  1. ATENOLOL. [Suspect]
     Active Substance: ATENOLOL
     Indication: MYOCARDIAL INFARCTION
     Dosage: 1/2 TABLET DAILY ONCE IN THE AM BY MOUTH
     Route: 048
     Dates: start: 20120101, end: 20140723
  2. SYNTHROID [Concomitant]
     Active Substance: LEVOTHYROXINE SODIUM
  3. DESLORATADINE. [Concomitant]
     Active Substance: DESLORATADINE
  4. CALTRATE [Concomitant]
     Active Substance: CALCIUM CARBONATE
  5. LANSOPRAZOLE. [Concomitant]
     Active Substance: LANSOPRAZOLE
  6. CENTRUM CHEWABLES [Concomitant]
  7. ATENOLOL. [Suspect]
     Active Substance: ATENOLOL
     Indication: MITRAL VALVE PROLAPSE
     Dosage: 1/2 TABLET DAILY ONCE IN THE AM BY MOUTH
     Route: 048
     Dates: start: 20120101, end: 20140723

REACTIONS (14)
  - Confusional state [None]
  - Visual impairment [None]
  - Blood pressure decreased [None]
  - Nightmare [None]
  - Dry mouth [None]
  - Dizziness [None]
  - Pancreatitis acute [None]
  - Malaise [None]
  - Alopecia [None]
  - Dyspnoea [None]
  - Fatigue [None]
  - Amnesia [None]
  - Lupus-like syndrome [None]
  - Dry eye [None]

NARRATIVE: CASE EVENT DATE: 20120101
